FAERS Safety Report 5498667-2 (Version None)
Quarter: 2007Q4

REPORT INFORMATION
  Report Type: 
  Country: None (occurrence: None)
  Receive Date: 20071024
  Receipt Date: 20071015
  Transmission Date: 20080405
  Serious: Yes (Disabling)
  Sender: FDA-Public Use
  Company Number: 2007AL004351

PATIENT
  Age: 26 Year
  Sex: Female

DRUGS (2)
  1. CITALOPRAM HYDROBROMIDE [Suspect]
     Indication: PANIC ATTACK
     Dosage: 40 MG; QD; PO
     Route: 048
     Dates: start: 20070910
  2. YASMIN [Concomitant]

REACTIONS (10)
  - BLEPHAROSPASM [None]
  - DIZZINESS [None]
  - DRY MOUTH [None]
  - DYSARTHRIA [None]
  - FALL [None]
  - FATIGUE [None]
  - FEELING HOT [None]
  - PARAESTHESIA [None]
  - SENSORY DISTURBANCE [None]
  - VOMITING [None]
